FAERS Safety Report 16887132 (Version 2)
Quarter: 2019Q4

REPORT INFORMATION
  Report Type: Report from Study
  Country: US (occurrence: US)
  Receive Date: 20191004
  Receipt Date: 20191028
  Transmission Date: 20200122
  Serious: Yes (Hospitalization)
  Sender: FDA-Public Use
  Company Number: US-ACTELION-A-US2017-151008

PATIENT
  Age: 83 Year
  Sex: Male
  Weight: 95.24 kg

DRUGS (3)
  1. DILTIAZEM. [Concomitant]
     Active Substance: DILTIAZEM
  2. WARFARIN [Concomitant]
     Active Substance: WARFARIN
  3. TRACLEER [Suspect]
     Active Substance: BOSENTAN
     Indication: PULMONARY ARTERIAL HYPERTENSION
     Dosage: 125 MG, BID
     Route: 048

REACTIONS (6)
  - Fall [Unknown]
  - Spinal cord operation [Unknown]
  - Syncope [Unknown]
  - Spinal cord compression [Unknown]
  - Head injury [Unknown]
  - Hypokinesia [Unknown]

NARRATIVE: CASE EVENT DATE: 201702
